FAERS Safety Report 6757476-4 (Version None)
Quarter: 2010Q2

REPORT INFORMATION
  Report Type: 
  Country: None (occurrence: None)
  Receive Date: 20100607
  Receipt Date: 20100524
  Transmission Date: 20101027
  Serious: No
  Sender: FDA-Public Use
  Company Number: US-BIOGENIDEC-2010BI017623

PATIENT
  Age: 56 Year
  Sex: Female

DRUGS (1)
  1. AVONEX [Suspect]
     Indication: MULTIPLE SCLEROSIS
     Route: 030
     Dates: start: 20031024

REACTIONS (4)
  - INFLUENZA LIKE ILLNESS [None]
  - INJECTION SITE URTICARIA [None]
  - LYMPHADENOPATHY [None]
  - RASH PRURITIC [None]
